FAERS Safety Report 7729873-1 (Version None)
Quarter: 2011Q3

REPORT INFORMATION
  Report Type: 
  Country: None (occurrence: None)
  Receive Date: 20110901
  Receipt Date: 20110901
  Transmission Date: 20111222
  Serious: Yes (Other)
  Sender: FDA-Public Use
  Company Number: None

PATIENT
  Sex: Female
  Weight: 61.2356 kg

DRUGS (2)
  1. COPAXONE [Suspect]
  2. COPAXONE [Suspect]
     Indication: MULTIPLE SCLEROSIS

REACTIONS (5)
  - PARALYSIS [None]
  - PRODUCT MEASURED POTENCY ISSUE [None]
  - HYPOAESTHESIA [None]
  - PARAESTHESIA [None]
  - SOMNOLENCE [None]
